FAERS Safety Report 16460966 (Version 4)
Quarter: 2019Q3

REPORT INFORMATION
  Report Type: Report from Study
  Country: JP (occurrence: JP)
  Receive Date: 20190620
  Receipt Date: 20190917
  Transmission Date: 20191004
  Serious: Yes (Hospitalization, Other)
  Sender: FDA-Public Use
  Company Number: JP-PFIZER INC-2019260607

PATIENT
  Age: 62 Year
  Sex: Male
  Weight: 68 kg

DRUGS (12)
  1. MUCOSTA [Concomitant]
     Active Substance: REBAMIPIDE
     Indication: GASTRITIS PROPHYLAXIS
  2. METHYCOBAL [Concomitant]
     Active Substance: METHYLCOBALAMIN
     Indication: LUMBAR SPINAL STENOSIS
     Dosage: 500 UG, 2X/DAY
     Route: 048
     Dates: start: 20181012
  3. ASP015K [Suspect]
     Active Substance: PEFICITINIB
     Indication: RHEUMATOID ARTHRITIS
     Dosage: 100 MG, ONCE DAILY, AFTER BREAKFAST
     Route: 048
     Dates: start: 20150904, end: 20170518
  4. FOLIAMIN [Concomitant]
     Active Substance: FOLIC ACID
     Indication: PROPHYLAXIS
     Dosage: 5 MG, WEEKLY
     Route: 048
  5. ASP015K [Suspect]
     Active Substance: PEFICITINIB
     Dosage: 150 MG, ONCE DAILY, AFTER BREAKFAST
     Route: 048
     Dates: start: 20170519, end: 20180122
  6. METHOTREXATE. [Concomitant]
     Active Substance: METHOTREXATE
     Dosage: 12 MG, WEEKLY
     Route: 048
     Dates: start: 20190625
  7. CELECOX [Suspect]
     Active Substance: CELECOXIB
     Indication: RHEUMATOID ARTHRITIS
     Dosage: 200 MG, 1X/DAY
     Route: 048
  8. ASP015K [Suspect]
     Active Substance: PEFICITINIB
     Dosage: 150 MG, ONCE DAILY, AFTER BREAKFAST
     Route: 048
     Dates: start: 20180126, end: 20190610
  9. METHOTREXATE. [Concomitant]
     Active Substance: METHOTREXATE
     Indication: RHEUMATOID ARTHRITIS
     Dosage: 12 MG, WEEKLY
     Route: 048
     Dates: end: 20190605
  10. MUCOSTA [Concomitant]
     Active Substance: REBAMIPIDE
     Indication: PROPHYLAXIS
     Dosage: 100 MG, 1X/DAY
     Route: 048
  11. YAKUBAN [Concomitant]
     Active Substance: FLURBIPROFEN
     Indication: RHEUMATOID ARTHRITIS
     Dosage: SUITABLE
     Route: 050
  12. RIVOTRIL [Concomitant]
     Active Substance: CLONAZEPAM
     Indication: LUMBAR SPINAL STENOSIS
     Dosage: 0.5 MG, ONCE DAILY
     Route: 048
     Dates: start: 20181012

REACTIONS (2)
  - Diverticulitis [Recovered/Resolved]
  - Peritonitis [Recovered/Resolved]

NARRATIVE: CASE EVENT DATE: 20190608
